FAERS Safety Report 4967360-4 (Version None)
Quarter: 2006Q2

REPORT INFORMATION
  Report Type: 
  Country: None (occurrence: None)
  Receive Date: 20060410
  Receipt Date: 20060329
  Transmission Date: 20061013
  Serious: Yes (Other)
  Sender: FDA-Public Use
  Company Number: PHEH2006US04181

PATIENT
  Sex: Male

DRUGS (1)
  1. ZOMETA [Suspect]
     Indication: MULTIPLE MYELOMA
     Dosage: 4 (UNSPECIFIED), EVERY 4 (UNSPECIFIED)
     Dates: start: 20040617, end: 20060220

REACTIONS (1)
  - OSTEONECROSIS [None]
